FAERS Safety Report 19484125 (Version 1)
Quarter: 2021Q3

REPORT INFORMATION
  Report Type: Report from Study
  Country: None (occurrence: CO)
  Receive Date: 20210702
  Receipt Date: 20210702
  Transmission Date: 20211014
  Serious: Yes (Other)
  Sender: FDA-Public Use
  Company Number: CO-ABBVIE-21K-036-3974420-00

PATIENT
  Sex: Male
  Weight: 72 kg

DRUGS (1)
  1. HUMIRA [Suspect]
     Active Substance: ADALIMUMAB
     Indication: COLITIS ULCERATIVE
     Route: 058
     Dates: start: 20190410

REACTIONS (6)
  - Abdominal pain upper [Recovering/Resolving]
  - Product storage error [Unknown]
  - Product administration error [Unknown]
  - Haemorrhoids [Recovering/Resolving]
  - Adverse food reaction [Unknown]
  - Liquid product physical issue [Recovering/Resolving]

NARRATIVE: CASE EVENT DATE: 2021
